FAERS Safety Report 13567969 (Version 1)
Quarter: 2017Q2

REPORT INFORMATION
  Report Type: Spontaneous
  Country: DE (occurrence: DE)
  Receive Date: 20170522
  Receipt Date: 20170522
  Transmission Date: 20170830
  Serious: Yes (Hospitalization, Other)
  Sender: FDA-Public Use
  Company Number: DE-GLAXOSMITHKLINE-DE2017GSK072951

PATIENT
  Sex: Male

DRUGS (2)
  1. LEVODOPA [Interacting]
     Active Substance: LEVODOPA
     Indication: PRODUCT USED FOR UNKNOWN INDICATION
  2. ELONTRIL [Suspect]
     Active Substance: BUPROPION HYDROCHLORIDE
     Indication: PRODUCT USED FOR UNKNOWN INDICATION

REACTIONS (9)
  - Pyrexia [Unknown]
  - Penile cancer [Unknown]
  - Dizziness [Unknown]
  - Arthralgia [Unknown]
  - Drug interaction [Unknown]
  - Streptococcal infection [Unknown]
  - Delirium [Unknown]
  - Dysgeusia [Unknown]
  - Chills [Unknown]
